FAERS Safety Report 18740722 (Version 1)
Quarter: 2021Q1

REPORT INFORMATION
  Report Type: Spontaneous
  Country: SE (occurrence: SE)
  Receive Date: 20210114
  Receipt Date: 20210114
  Transmission Date: 20210419
  Serious: Yes (Hospitalization, Other)
  Sender: FDA-Public Use
  Company Number: SE-TEVA-2021-SE-1868303

PATIENT
  Age: 47 Year
  Sex: Male

DRUGS (3)
  1. FLUOROURACIL TEVA [Suspect]
     Active Substance: FLUOROURACIL
     Dosage: DOSE GIVEN DURING 48H
     Route: 042
     Dates: start: 20210105, end: 20210107
  2. FLUOROURACIL TEVA [Suspect]
     Active Substance: FLUOROURACIL
     Indication: COLON CANCER
     Dosage: BOLUS DOSE
     Route: 042
     Dates: start: 20210105, end: 20210105
  3. CALCIUMFOLINAT [Suspect]
     Active Substance: LEUCOVORIN CALCIUM
     Dosage: BOLUS DOSE
     Route: 042
     Dates: start: 20210105, end: 20210105

REACTIONS (1)
  - Myocardial infarction [Not Recovered/Not Resolved]

NARRATIVE: CASE EVENT DATE: 20210107
